FAERS Safety Report 4598177-0 (Version None)
Quarter: 2005Q1

REPORT INFORMATION
  Report Type: 
  Country: None (occurrence: None)
  Receive Date: 20050301
  Receipt Date: 20050301
  Transmission Date: 20050727
  Serious: No
  Sender: FDA-Public Use
  Company Number: None

PATIENT
  Sex: Male
  Weight: 83 kg

DRUGS (2)
  1. PACLITAXEL [Suspect]
     Dosage: 200 MG/M2 IV OVER 3 HR ON DAY 1, EVERY 21 DAYS X 6 CYCLES
     Route: 042
     Dates: start: 20040408
  2. CARBOPLATIN [Suspect]
     Dosage: AUC = 6 IV OVER 15-30 MIN ON DAY 1 EVERY 21 DAYS X 6 CYCLES
     Route: 042
     Dates: start: 20040408

REACTIONS (9)
  - CHEST DISCOMFORT [None]
  - DEPRESSED LEVEL OF CONSCIOUSNESS [None]
  - DYSKINESIA [None]
  - DYSPNOEA [None]
  - EYE ROLLING [None]
  - FLUSHING [None]
  - HYPERHIDROSIS [None]
  - NAUSEA [None]
  - VOMITING [None]
